FAERS Safety Report 18920612 (Version 2)
Quarter: 2021Q1

REPORT INFORMATION
  Report Type: Spontaneous
  Country: US (occurrence: US)
  Receive Date: 20210222
  Receipt Date: 20210316
  Transmission Date: 20210420
  Serious: No
  Sender: FDA-Public Use
  Company Number: US-JNJFOC-20210229181

PATIENT
  Age: 80 Year
  Sex: Male
  Weight: 90.8 kg

DRUGS (2)
  1. ZYTIGA [Suspect]
     Active Substance: ABIRATERONE ACETATE
     Indication: PRODUCT USED FOR UNKNOWN INDICATION
     Route: 048
     Dates: start: 20201016
  2. PREDNISONE. [Concomitant]
     Active Substance: PREDNISONE
     Route: 065

REACTIONS (5)
  - Bone density decreased [Unknown]
  - Skin atrophy [Unknown]
  - Back disorder [Unknown]
  - Contusion [Unknown]
  - Skin haemorrhage [Unknown]
